FAERS Safety Report 17735547 (Version 1)
Quarter: 2020Q2

REPORT INFORMATION
  Report Type: Spontaneous
  Country: US (occurrence: US)
  Receive Date: 20200501
  Receipt Date: 20200501
  Transmission Date: 20200714
  Serious: Yes (Hospitalization)
  Sender: FDA-Public Use
  Company Number: US-B.I. PHARMACEUTICALS,INC./RIDGEFIELD-2020-US-021639

PATIENT
  Age: 71 Year
  Sex: Male

DRUGS (5)
  1. OMEPRAZOLE. [Concomitant]
     Active Substance: OMEPRAZOLE
     Indication: GASTROOESOPHAGEAL REFLUX DISEASE
     Dosage: 20 MG DAILY
     Route: 065
  2. ERITHROMYCIN [Concomitant]
     Indication: PROPHYLAXIS
     Dosage: 1 TABLET EVERY MONDAY, WEDNESDAY, FRIDAY
     Route: 065
  3. SPIRIVA [Suspect]
     Active Substance: TIOTROPIUM BROMIDE MONOHYDRATE
     Indication: CHRONIC OBSTRUCTIVE PULMONARY DISEASE
     Dosage: 2 INHALATIONS FROM 1 CAPSULE DAILY.
     Route: 065
     Dates: start: 2018
  4. BREO ELLIPTA [Concomitant]
     Active Substance: FLUTICASONE FUROATE\VILANTEROL TRIFENATATE
     Indication: CHRONIC OBSTRUCTIVE PULMONARY DISEASE
     Dosage: 1 INHALATION AT NIGHT DAILY
     Route: 065
  5. ALBUTEROL. [Concomitant]
     Active Substance: ALBUTEROL
     Indication: CHRONIC OBSTRUCTIVE PULMONARY DISEASE
     Dosage: AS NEEDED, FORM - NEBULIZER
     Route: 065

REACTIONS (9)
  - Gait inability [Recovered/Resolved]
  - Limb discomfort [Recovered/Resolved]
  - Limb discomfort [Recovered/Resolved]
  - Total lung capacity abnormal [Unknown]
  - Viral infection [Recovered/Resolved]
  - Anaemia [Recovered/Resolved]
  - Spinal cord injury [Unknown]
  - Abdominal discomfort [Recovered/Resolved]
  - Dehydration [Recovered/Resolved]

NARRATIVE: CASE EVENT DATE: 20190219
